FAERS Safety Report 21282876 (Version 1)
Quarter: 2022Q3

REPORT INFORMATION
  Report Type: Spontaneous
  Country: US (occurrence: US)
  Receive Date: 20220901
  Receipt Date: 20220901
  Transmission Date: 20221026
  Serious: Yes (Hospitalization)
  Sender: FDA-Public Use
  Company Number: US-BAYER-2022A122654

PATIENT
  Age: 62 Year
  Sex: Female
  Weight: 115.65 kg

DRUGS (5)
  1. ADEMPAS [Suspect]
     Active Substance: RIOCIGUAT
     Indication: Product used for unknown indication
  2. TYVASO [Suspect]
     Active Substance: TREPROSTINIL
     Indication: Pulmonary arterial hypertension
     Dosage: UNK
     Dates: start: 20151130
  3. TYVASO [Suspect]
     Active Substance: TREPROSTINIL
     Indication: Pulmonary arterial hypertension
     Dosage: 54 ?G, QID
  4. TYVASO [Suspect]
     Active Substance: TREPROSTINIL
     Indication: Pulmonary arterial hypertension
     Dosage: UNK
  5. ELIQUIS [Concomitant]
     Active Substance: APIXABAN

REACTIONS (5)
  - Gastrectomy [None]
  - Haemorrhage [None]
  - Post procedural complication [None]
  - Drug hypersensitivity [None]
  - Product dose omission issue [None]

NARRATIVE: CASE EVENT DATE: 20220727
